FAERS Safety Report 8906289 (Version 1)
Quarter: 2012Q4

REPORT INFORMATION
  Report Type: Spontaneous
  Country: US (occurrence: None)
  Receive Date: 20121112
  Receipt Date: 20121112
  Transmission Date: 20130627
  Serious: Yes (Other)
  Sender: FDA-Public Use
  Company Number: None

PATIENT
  Age: 53 Year
  Sex: Female
  Weight: 72.58 kg

DRUGS (1)
  1. REGADENOSON [Suspect]
     Indication: CARDIAC STRESS TEST
     Dosage: .4mg once IV bolus
     Route: 040
     Dates: start: 20121105, end: 20121105

REACTIONS (4)
  - Dyspnoea [None]
  - Swollen tongue [None]
  - Respiration abnormal [None]
  - Contrast media allergy [None]
